FAERS Safety Report 5168885-1 (Version None)
Quarter: 2006Q4

REPORT INFORMATION
  Report Type: 
  Country: None (occurrence: None)
  Receive Date: 20061201
  Receipt Date: 20061121
  Transmission Date: 20070319
  Serious: Yes (Other)
  Sender: FDA-Public Use
  Company Number: 2006144517

PATIENT
  Age: 12 Year
  Sex: Male

DRUGS (2)
  1. NEURONTIN [Suspect]
     Indication: BONE PAIN
     Dosage: 300 MG (300 MG, 1 IN 1 D)
     Dates: start: 20061113
  2. NEURONTIN [Suspect]
     Indication: CONCUSSION
     Dosage: 300 MG (300 MG, 1 IN 1 D)
     Dates: start: 20061113

REACTIONS (3)
  - ABASIA [None]
  - ASTHENIA [None]
  - CONDITION AGGRAVATED [None]
